FAERS Safety Report 7570832-X (Version None)
Quarter: 2011Q2

REPORT INFORMATION
  Report Type: 
  Country: None (occurrence: None)
  Receive Date: 20110624
  Receipt Date: 20110520
  Transmission Date: 20111010
  Serious: No
  Sender: FDA-Public Use
  Company Number: US-ALLERGAN-1106934US

PATIENT
  Age: 60 Year
  Sex: Female

DRUGS (3)
  1. LATISSE [Suspect]
     Indication: GROWTH OF EYELASHES
     Dosage: 1-2 DROPS PLACED IN THE LID
     Route: 061
     Dates: start: 20110401
  2. MASCARA [Concomitant]
  3. EYELINER [Concomitant]

REACTIONS (3)
  - EYELID EXFOLIATION [None]
  - WRONG TECHNIQUE IN DRUG USAGE PROCESS [None]
  - DRY SKIN [None]
